FAERS Safety Report 20356046 (Version 1)
Quarter: 2022Q1

REPORT INFORMATION
  Report Type: Report from Study
  Country: US (occurrence: US)
  Receive Date: 20220120
  Receipt Date: 20220120
  Transmission Date: 20220423
  Serious: No
  Sender: FDA-Public Use
  Company Number: US-BIOVITRUM-2022US00544

PATIENT
  Sex: Male

DRUGS (3)
  1. DOPTELET [Suspect]
     Active Substance: AVATROMBOPAG MALEATE
     Indication: Immune thrombocytopenia
  2. CALCIPOTRIENE [Concomitant]
     Active Substance: CALCIPOTRIENE
  3. FLUOROURACIL [Concomitant]
     Active Substance: FLUOROURACIL

REACTIONS (2)
  - Myalgia [Unknown]
  - Off label use [Unknown]
